FAERS Safety Report 6999702-2 (Version None)
Quarter: 2010Q3

REPORT INFORMATION
  Report Type: 
  Country: None (occurrence: None)
  Receive Date: 20100920
  Receipt Date: 20070321
  Transmission Date: 20110219
  Serious: Yes (Hospitalization)
  Sender: FDA-Public Use
  Company Number: US-ASTRAZENECA-2006UW03035

PATIENT
  Age: 16278 Day
  Sex: Female
  Weight: 111.6 kg

DRUGS (12)
  1. SEROQUEL [Suspect]
     Indication: MENTAL DISORDER
     Route: 048
     Dates: start: 20020101, end: 20040101
  2. SEROQUEL [Suspect]
     Route: 048
     Dates: start: 20030407
  3. ZYPREXA [Suspect]
     Dates: start: 20030101
  4. RISPERDAL [Suspect]
     Dates: start: 20030813, end: 20040311
  5. STELAZINE [Concomitant]
     Dates: start: 20030101
  6. OTHER PSYCHIATRIC MEDICATION [Concomitant]
     Dates: start: 20030101
  7. ZOLOFT [Concomitant]
     Dosage: 50-200MG
     Dates: start: 19951122
  8. VISTARIL [Concomitant]
     Dosage: 25-300MG
     Dates: start: 20030205
  9. TRAZODONE HCL [Concomitant]
     Dosage: 150-300MG, AT NIGHT
     Route: 048
     Dates: start: 20030205
  10. WELLBUTRIN SR [Concomitant]
     Dosage: 150-300MG
     Dates: start: 20010118
  11. PREVACID [Concomitant]
     Dates: start: 20010118
  12. FLOVENT [Concomitant]
     Dosage: 110MCG, 2 PUFFS TWICE A DAY
     Dates: start: 20010123

REACTIONS (3)
  - DIABETES MELLITUS [None]
  - HYPERGLYCAEMIA [None]
  - WEIGHT INCREASED [None]
